FAERS Safety Report 15289350 (Version 1)
Quarter: 2018Q4

REPORT INFORMATION
  Report Type: Spontaneous
  Country: FR (occurrence: FR)
  Receive Date: 20180817
  Receipt Date: 20180817
  Transmission Date: 20190204
  Serious: Yes (Life-Threatening)
  Sender: FDA-Public Use
  Company Number: FR-TEVA-2018-FR-942809

PATIENT
  Age: 69 Year
  Sex: Female

DRUGS (11)
  1. CEFTRIAXONE MYLAN 1 G, POUDRE POUR SOLUTION INJECTABLE [Suspect]
     Active Substance: CEFTRIAXONE
     Indication: BACTERAEMIA
     Dosage: 1 GRAM
     Route: 042
     Dates: start: 20180606, end: 20180606
  2. KARDEGIC [Concomitant]
     Active Substance: ASPIRIN DL-LYSINE
  3. EUPANTOL [Concomitant]
     Active Substance: PANTOPRAZOLE SODIUM
  4. VANCOMYCINE [Suspect]
     Active Substance: VANCOMYCIN
     Indication: BACTERAEMIA
     Route: 042
     Dates: start: 201804
  5. GENTAMICINE [Suspect]
     Active Substance: GENTAMICIN
     Indication: BACTERAEMIA
     Dosage: 125 MILLIGRAM
     Route: 042
     Dates: start: 20180606, end: 20180606
  6. TAHOR [Concomitant]
     Active Substance: ATORVASTATIN CALCIUM
  7. DEDROGYL 15 MG/ 100 ML, SOLUTION BUVABLE EN GOUTTES [Concomitant]
     Dosage: 15 MG/100 ML
  8. MOVICOL [Concomitant]
     Active Substance: POLYETHYLENE GLYCOL 3350\POTASSIUM CHLORIDE\SODIUM BICARBONATE\SODIUM CHLORIDE
     Route: 065
  9. BISOCE 1,25 MG, COMPRIM? PELLICUL? [Concomitant]
     Active Substance: BISOPROLOL FUMARATE
  10. APROVEL 75 MG, COMPRIM? [Concomitant]
  11. PAROXETINE (CHLORHYDRATE DE) HEMIHYDRATE [Concomitant]
     Active Substance: PAROXETINE HYDROCHLORIDE
     Route: 065

REACTIONS (2)
  - Anaphylactic shock [Recovered/Resolved with Sequelae]
  - Cardio-respiratory arrest [Recovered/Resolved with Sequelae]

NARRATIVE: CASE EVENT DATE: 20180606
